FAERS Safety Report 21118130 (Version 4)
Quarter: 2022Q3

REPORT INFORMATION
  Report Type: Spontaneous
  Country: US (occurrence: US)
  Receive Date: 20220722
  Receipt Date: 20220905
  Transmission Date: 20221027
  Serious: Yes (Other)
  Sender: FDA-Public Use
  Company Number: US-ORGANON-O2207USA001666

PATIENT
  Sex: Female
  Weight: 151.02 kg

DRUGS (1)
  1. NEXPLANON [Suspect]
     Active Substance: ETONOGESTREL
     Dosage: 1 IMPLANT OF 68 MG, LEFT UPPER ARM
     Route: 059
     Dates: start: 20220624

REACTIONS (4)
  - Device dislocation [Not Recovered/Not Resolved]
  - Device expulsion [Not Recovered/Not Resolved]
  - Implant site pain [Not Recovered/Not Resolved]
  - Wrong technique in product usage process [Unknown]

NARRATIVE: CASE EVENT DATE: 20220101
